FAERS Safety Report 24404876 (Version 1)
Quarter: 2024Q4

REPORT INFORMATION
  Report Type: Spontaneous
  Country: US (occurrence: None)
  Receive Date: 20241004
  Receipt Date: 20241004
  Transmission Date: 20250115
  Serious: Yes (unspecified)
  Sender: Public
  Company Number: None

PATIENT
  Age: 14 Year
  Sex: Female
  Weight: 82.7 kg

DRUGS (2)
  1. DOTAREM [Suspect]
     Active Substance: GADOTERATE MEGLUMINE
     Indication: Mass
     Dosage: 16.5 ML AS NEEDED INTRAVENOUS
     Route: 042
  2. Observation [Concomitant]
     Dates: start: 20241004, end: 20241004

REACTIONS (4)
  - Cough [None]
  - Periorbital swelling [None]
  - Scan with contrast [None]
  - Post procedural complication [None]

NARRATIVE: CASE EVENT DATE: 20241004
